FAERS Safety Report 9308133 (Version 1)
Quarter: 2013Q2

REPORT INFORMATION
  Report Type: Spontaneous
  Country: BR (occurrence: BR)
  Receive Date: 20130524
  Receipt Date: 20130524
  Transmission Date: 20140414
  Serious: Yes (Other)
  Sender: FDA-Public Use
  Company Number: BR-AMGEN-BRASP2012035866

PATIENT
  Age: 64 Year
  Sex: Male

DRUGS (8)
  1. ENBREL [Suspect]
     Indication: RHEUMATOID ARTHRITIS
     Dosage: 50 MG, ONCE WEEKLY
     Route: 058
     Dates: start: 20120213
  2. METICORTEN [Concomitant]
     Dosage: UNK
  3. CENTRUM                            /00554501/ [Concomitant]
     Dosage: UNK
  4. CALCIUM [Concomitant]
     Dosage: UNK
  5. LOSARTAN POTASSIUM [Concomitant]
     Indication: BLOOD PRESSURE INCREASED
     Dosage: UNK
  6. METHOTREXATE [Concomitant]
     Dosage: 7 TABLETS (2.5 EACH, UNSPECIFIED UNIT), ONCE WEEKLY
  7. ASSERT [Concomitant]
     Dosage: UNSPECIFIED DOSE, ONCE A DAY
  8. ENDOFOLIN [Concomitant]
     Dosage: UNSPECIFIED DOSE, ONCE A DAY

REACTIONS (6)
  - Pyrexia [Unknown]
  - Chronic sinusitis [Unknown]
  - Sinusitis fungal [Unknown]
  - Pruritus [Unknown]
  - Application site erythema [Unknown]
  - Application site swelling [Unknown]
